FAERS Safety Report 19288797 (Version 1)
Quarter: 2021Q2

REPORT INFORMATION
  Report Type: Spontaneous
  Country: CN (occurrence: CN)
  Receive Date: 20210522
  Receipt Date: 20210522
  Transmission Date: 20210717
  Serious: Yes (Other)
  Sender: FDA-Public Use
  Company Number: CN-AMGEN-CHNSP2021078392

PATIENT
  Age: 38 Year
  Sex: Female

DRUGS (1)
  1. XGEVA [Suspect]
     Active Substance: DENOSUMAB
     Indication: BONE GIANT CELL TUMOUR
     Dosage: UNK
     Route: 065

REACTIONS (2)
  - Fibroma [Unknown]
  - Immunoglobulin G4 related disease [Unknown]
